FAERS Safety Report 10128466 (Version 1)
Quarter: 2014Q2

REPORT INFORMATION
  Report Type: Spontaneous
  Country: US (occurrence: None)
  Receive Date: 20140424
  Receipt Date: 20140424
  Transmission Date: 20141212
  Serious: Yes (Other)
  Sender: FDA-Public Use
  Company Number: SYM-2014-19892

PATIENT
  Age: 70 Year
  Sex: Female

DRUGS (1)
  1. ALDARA [Suspect]
     Indication: SQUAMOUS CELL CARCINOMA
     Route: 061
     Dates: start: 2014, end: 2014

REACTIONS (2)
  - Renal impairment [None]
  - Condition aggravated [None]
